FAERS Safety Report 6518995-9 (Version None)
Quarter: 2009Q4

REPORT INFORMATION
  Report Type: 
  Country: None (occurrence: None)
  Receive Date: 20091228
  Receipt Date: 20091217
  Transmission Date: 20100525
  Serious: Yes (Other)
  Sender: FDA-Public Use
  Company Number: BR-MILLENNIUM PHARMACEUTICALS, INC.-2009-05265

PATIENT

DRUGS (4)
  1. VELCADE [Suspect]
     Indication: MULTIPLE MYELOMA
     Dosage: UNK
  2. DECADRON [Concomitant]
     Indication: MULTIPLE MYELOMA
     Dosage: UNK
  3. ZOMETA [Concomitant]
     Dosage: UNK
  4. INSULIN [Concomitant]
     Dosage: UNK

REACTIONS (1)
  - COLITIS [None]
